FAERS Safety Report 5128401-7 (Version None)
Quarter: 2006Q4

REPORT INFORMATION
  Report Type: 
  Country: None (occurrence: None)
  Receive Date: 20061017
  Receipt Date: 20061004
  Transmission Date: 20070319
  Serious: Yes (Life-Threatening, Hospitalization)
  Sender: FDA-Public Use
  Company Number: NL-NOVOPROD-257507

PATIENT
  Age: 49 Year
  Sex: Male

DRUGS (2)
  1. MIXTARD HUMAN 70/30 [Suspect]
     Indication: DRUG USE FOR UNKNOWN INDICATION
     Dosage: 600 IU, SINGLE
     Route: 030
     Dates: start: 20061003
  2. METFORMIN HCL [Concomitant]
     Indication: DIABETES MELLITUS NON-INSULIN-DEPENDENT
     Dosage: 500 MG, QD

REACTIONS (3)
  - NO ADVERSE EFFECT [None]
  - SELF-MEDICATION [None]
  - SUICIDE ATTEMPT [None]
